FAERS Safety Report 9639450 (Version 2)
Quarter: 2013Q4

REPORT INFORMATION
  Report Type: Report from Study
  Country: IE (occurrence: IE)
  Receive Date: 20131022
  Receipt Date: 20131022
  Transmission Date: 20140711
  Serious: Yes (Other)
  Sender: FDA-Public Use
  Company Number: IE-ROCHE-1271401

PATIENT
  Sex: Female
  Weight: 1.5 kg

DRUGS (10)
  1. TRASTUZUMAB [Suspect]
     Indication: PRODUCT USED FOR UNKNOWN INDICATION
     Route: 064
     Dates: start: 201110, end: 201112
  2. TRASTUZUMAB [Suspect]
     Route: 064
     Dates: start: 201201, end: 201207
  3. TRASTUZUMAB [Suspect]
     Route: 064
     Dates: start: 201207, end: 201303
  4. DOXORUBICIN [Suspect]
     Indication: PRODUCT USED FOR UNKNOWN INDICATION
     Route: 064
  5. DOCETAXEL [Suspect]
     Indication: PRODUCT USED FOR UNKNOWN INDICATION
     Route: 064
     Dates: start: 201110, end: 201112
  6. DOCETAXEL [Suspect]
     Route: 064
     Dates: start: 201207, end: 201303
  7. TAMOXIFEN [Suspect]
     Indication: PRODUCT USED FOR UNKNOWN INDICATION
     Route: 064
     Dates: start: 201201, end: 201207
  8. CYCLOPHOSPHAMIDE [Suspect]
     Indication: PRODUCT USED FOR UNKNOWN INDICATION
     Route: 064
  9. VINORELBINE [Suspect]
     Indication: PRODUCT USED FOR UNKNOWN INDICATION
     Route: 064
     Dates: start: 201207, end: 201303
  10. CARBOPLATIN [Suspect]
     Indication: PRODUCT USED FOR UNKNOWN INDICATION
     Route: 064
     Dates: start: 201207, end: 201303

REACTIONS (6)
  - Renal impairment [Unknown]
  - Brain scan abnormal [Unknown]
  - Neonatal respiratory distress syndrome [Recovered/Resolved]
  - Pneumothorax [Recovered/Resolved]
  - Vitamin D decreased [Unknown]
  - Maternal exposure timing unspecified [Unknown]
